FAERS Safety Report 9836829 (Version 1)
Quarter: 2013Q4

REPORT INFORMATION
  Report Type: Spontaneous
  Country: US (occurrence: None)
  Receive Date: 20131121
  Receipt Date: 20131121
  Transmission Date: 20140711
  Serious: No
  Sender: FDA-Public Use
  Company Number: 1000047944

PATIENT
  Age: 72 Year
  Sex: Male

DRUGS (3)
  1. TUDORZA PRESSAIR (ACLIDINIUM BROMIDE) (400 MICROGRAM, POWDER) [Suspect]
     Indication: CHRONIC OBSTRUCTIVE PULMONARY DISEASE
     Dosage: 400MCG (300 MCG, 1 IN 1
     Dates: start: 2013, end: 20130814
  2. POTASSIUM (POTASSIUM) (POTASSIUM) [Concomitant]
  3. OXYGEN (OXYGEN) (OXYGEN) [Concomitant]

REACTIONS (3)
  - Vision blurred [None]
  - Oedema peripheral [None]
  - Nervousness [None]
